FAERS Safety Report 23545154 (Version 1)
Quarter: 2024Q1

REPORT INFORMATION
  Report Type: Spontaneous
  Country: US (occurrence: None)
  Receive Date: 20240218
  Receipt Date: 20240218
  Transmission Date: 20240410
  Serious: Yes (Other)
  Sender: FDA-Public Use
  Company Number: None

PATIENT
  Age: 53 Year
  Sex: Male
  Weight: 82.35 kg

DRUGS (10)
  1. OZEMPIC [Suspect]
     Active Substance: SEMAGLUTIDE
     Indication: Type 2 diabetes mellitus
     Dosage: FREQUENCY : WEEKLY;?
     Route: 048
     Dates: start: 20230905, end: 20231120
  2. COVID BOOSTER [Concomitant]
  3. DEXAMETHASONE [Concomitant]
     Active Substance: DEXAMETHASONE
  4. VELCADE [Concomitant]
     Active Substance: BORTEZOMIB
  5. ACYCLOVIR [Concomitant]
     Active Substance: ACYCLOVIR
  6. DARZALEX [Concomitant]
     Active Substance: DARATUMUMAB
  7. ATORVASTATIN [Concomitant]
     Active Substance: ATORVASTATIN
  8. JARDIANCE [Concomitant]
     Active Substance: EMPAGLIFLOZIN
  9. PROZAC [Concomitant]
     Active Substance: FLUOXETINE HYDROCHLORIDE
  10. Wellbutrin SR (bupropion) [Concomitant]

REACTIONS (9)
  - Weight decreased [None]
  - Nausea [None]
  - Decreased appetite [None]
  - Unresponsive to stimuli [None]
  - Concussion [None]
  - Head injury [None]
  - Hypotension [None]
  - Dehydration [None]
  - Dizziness [None]

NARRATIVE: CASE EVENT DATE: 20231127
